FAERS Safety Report 11434305 (Version 1)
Quarter: 2015Q3

REPORT INFORMATION
  Report Type: Spontaneous
  Country: US (occurrence: US)
  Receive Date: 20150831
  Receipt Date: 20150831
  Transmission Date: 20151125
  Serious: No
  Sender: FDA-Public Use
  Company Number: US-MIKART, INC.-1041528

PATIENT
  Sex: Male

DRUGS (1)
  1. BUTALBITAL AND ACETAMINOPHEN [Suspect]
     Active Substance: ACETAMINOPHEN\BUTALBITAL
     Indication: HEADACHE
     Route: 048
     Dates: start: 1986

REACTIONS (3)
  - Macular degeneration [Unknown]
  - Road traffic accident [Unknown]
  - Cataract [Unknown]

NARRATIVE: CASE EVENT DATE: 1997
